FAERS Safety Report 6179752-9 (Version None)
Quarter: 2009Q2

REPORT INFORMATION
  Report Type: 
  Country: None (occurrence: None)
  Receive Date: 20090501
  Receipt Date: 20090501
  Transmission Date: 20091009
  Serious: Yes (Life-Threatening, Hospitalization)
  Sender: FDA-Public Use
  Company Number: None

PATIENT
  Age: 71 Year
  Sex: Male
  Weight: 81.6475 kg

DRUGS (2)
  1. FLOMAX [Suspect]
     Indication: POLLAKIURIA
     Dosage: ONE A DAY ONCE A DAY
     Dates: start: 20090111
  2. FLOMAX [Suspect]
     Indication: POLLAKIURIA
     Dosage: ONE A DAY ONCE A DAY
     Dates: start: 20090310

REACTIONS (5)
  - DIZZINESS [None]
  - FALL [None]
  - LOSS OF CONSCIOUSNESS [None]
  - SOMNOLENCE [None]
  - SYNCOPE [None]
